FAERS Safety Report 11100652 (Version 6)
Quarter: 2017Q1

REPORT INFORMATION
  Report Type: Spontaneous
  Country: US (occurrence: US)
  Receive Date: 20150508
  Receipt Date: 20170106
  Transmission Date: 20170428
  Serious: Yes (Other)
  Sender: FDA-Public Use
  Company Number: US-SA-2015SA060567

PATIENT
  Age: 53 Year
  Sex: Male

DRUGS (10)
  1. LANTUS SOLOSTAR [Suspect]
     Active Substance: INSULIN GLARGINE
     Indication: TYPE 2 DIABETES MELLITUS
     Dosage: 60 UNITS IN THE MORNING 65 UNITS IN THE EVENING
     Route: 065
     Dates: start: 2013
  2. LANTUS [Suspect]
     Active Substance: INSULIN GLARGINE
     Route: 065
     Dates: start: 2011
  3. SOLOSTAR [Concomitant]
     Active Substance: DEVICE
     Indication: TYPE 2 DIABETES MELLITUS
  4. HUMALOG [Concomitant]
     Active Substance: INSULIN LISPRO
  5. LANTUS SOLOSTAR [Suspect]
     Active Substance: INSULIN GLARGINE
     Indication: TYPE 2 DIABETES MELLITUS
     Dosage: 60 UNITS IN THE MORNING 65 UNITS IN THE EVENING
     Route: 065
     Dates: start: 2013
  6. LANTUS SOLOSTAR [Suspect]
     Active Substance: INSULIN GLARGINE
     Indication: TYPE 2 DIABETES MELLITUS
     Dosage: 60 UNITS IN THE MORNING 65 UNITS IN THE EVENING
     Route: 065
     Dates: start: 2013
  7. LANTUS SOLOSTAR [Suspect]
     Active Substance: INSULIN GLARGINE
     Indication: TYPE 2 DIABETES MELLITUS
     Dosage: 60 UNITS IN THE MORNING 65 UNITS IN THE EVENING
     Route: 065
     Dates: start: 2013
  8. LANTUS [Suspect]
     Active Substance: INSULIN GLARGINE
     Route: 065
     Dates: start: 2011
  9. LANTUS [Suspect]
     Active Substance: INSULIN GLARGINE
     Route: 065
     Dates: start: 2011
  10. NOVOLOG [Concomitant]
     Active Substance: INSULIN ASPART

REACTIONS (12)
  - Underdose [Unknown]
  - Diabetic retinopathy [Unknown]
  - Surgery [Unknown]
  - Post procedural haemorrhage [Unknown]
  - Leukaemia [Unknown]
  - Optic nerve disorder [Unknown]
  - Product use issue [Unknown]
  - Cough [Unknown]
  - Asthenia [Unknown]
  - Blindness [Unknown]
  - Eye pain [Unknown]
  - Nausea [Unknown]

NARRATIVE: CASE EVENT DATE: 201209
